FAERS Safety Report 7465991-3 (Version None)
Quarter: 2011Q2

REPORT INFORMATION
  Report Type: 
  Country: None (occurrence: None)
  Receive Date: 20110509
  Receipt Date: 20100519
  Transmission Date: 20111010
  Serious: No
  Sender: FDA-Public Use
  Company Number: US-ALEXION-A201000578

PATIENT
  Sex: Male

DRUGS (13)
  1. FOLTX [Concomitant]
     Dosage: 2-2.5-25 MG TABLETS, QD
     Route: 048
  2. LOMOTIL                            /00034001/ [Concomitant]
     Dosage: 2.5-.025 MG QID PRN
     Route: 048
  3. FERROUS SULFATE TAB [Concomitant]
     Dosage: UNK
     Route: 048
  4. VIDAZA [Suspect]
     Dosage: 127 MG, D 1-5 FOR 4 28 DAY CYCLES
     Route: 058
     Dates: end: 20100701
  5. SOLIRIS [Suspect]
     Dosage: 900 MG, Q2W
     Route: 042
  6. PREDNISONE [Concomitant]
     Dosage: TAPER AS DIRECTED
     Route: 048
  7. CENTRUM SILVER                     /01292501/ [Concomitant]
     Dosage: 1 TABLET QD
     Route: 048
  8. METOPROLOL TARTRATE [Concomitant]
     Dosage: 50 MG, QD
     Route: 048
  9. OMEPRAZOLE [Concomitant]
     Dosage: 20 MG, QD
     Route: 048
  10. SIMVASTIN-MEPHA [Concomitant]
     Dosage: 20 MG, QD
     Route: 048
  11. SOLIRIS [Suspect]
     Indication: PAROXYSMAL NOCTURNAL HAEMOGLOBINURIA
     Dosage: 600 MG, QW
     Route: 042
     Dates: start: 20100426, end: 20100517
  12. GRANISETRON HCL [Concomitant]
     Dosage: 1000 MG, + 1-7
     Route: 040
  13. SPIRIVA [Concomitant]
     Dosage: 18 UG AS DIRECTED

REACTIONS (4)
  - CONDITION AGGRAVATED [None]
  - BLOOD PRODUCT TRANSFUSION DEPENDENT [None]
  - HAEMOGLOBIN DECREASED [None]
  - DIARRHOEA [None]
